FAERS Safety Report 6372435-1 (Version None)
Quarter: 2009Q3

REPORT INFORMATION
  Report Type: 
  Country: None (occurrence: None)
  Receive Date: 20090924
  Receipt Date: 20080815
  Transmission Date: 20100115
  Serious: No
  Sender: FDA-Public Use
  Company Number: US-ASTRAZENECA-2008UW16758

PATIENT
  Age: 29 Year
  Sex: Male
  Weight: 90.7 kg

DRUGS (6)
  1. SEROQUEL [Suspect]
     Indication: SLEEP DISORDER
     Route: 048
  2. ATENOLOL [Concomitant]
  3. GLUCOPHAGE [Concomitant]
  4. KLONOPIN [Concomitant]
  5. PROSTATIN [Concomitant]
  6. UNSPECIFIED CHOLESTEROL MEDICATION [Concomitant]

REACTIONS (4)
  - BLOOD PRESSURE INCREASED [None]
  - DYSGEUSIA [None]
  - MYDRIASIS [None]
  - VISION BLURRED [None]
